FAERS Safety Report 7582422-3 (Version None)
Quarter: 2011Q2

REPORT INFORMATION
  Report Type: 
  Country: None (occurrence: None)
  Receive Date: 20110630
  Receipt Date: 20110617
  Transmission Date: 20111010
  Serious: Yes (Hospitalization, Other)
  Sender: FDA-Public Use
  Company Number: US-ELI_LILLY_AND_COMPANY-US201106007382

PATIENT
  Age: 31 Year
  Sex: Female

DRUGS (8)
  1. ZYPREXA [Suspect]
     Indication: BIPOLAR DISORDER
     Dosage: UNK
     Dates: start: 19970101, end: 20050101
  2. XANAX [Concomitant]
  3. VICODIN [Concomitant]
     Dosage: UNK, PRN
  4. ORAL CONTRACEPTIVE NOS [Concomitant]
     Indication: ORAL CONTRACEPTION
  5. ZYPREXA [Suspect]
     Dosage: 12 MG, QD
     Dates: start: 20101201
  6. CYMBALTA [Suspect]
     Indication: NECK PAIN
     Dosage: 60 MG, QD
     Dates: start: 20101201
  7. DIOVAN [Concomitant]
     Indication: BLOOD PRESSURE
  8. SYMBYAX [Suspect]
     Indication: BIPOLAR DISORDER
     Dosage: 1 DF, QD
     Dates: start: 20050101, end: 20101201

REACTIONS (13)
  - THINKING ABNORMAL [None]
  - PAIN [None]
  - SURGICAL FAILURE [None]
  - WEIGHT DECREASED [None]
  - BLOOD CREATININE INCREASED [None]
  - DRUG EFFECT DECREASED [None]
  - WEIGHT INCREASED [None]
  - BLOOD PRESSURE FLUCTUATION [None]
  - INTERVERTEBRAL DISC OPERATION [None]
  - INCREASED APPETITE [None]
  - RENAL DISORDER [None]
  - MANIA [None]
  - OVERDOSE [None]
